FAERS Safety Report 4870096-1 (Version None)
Quarter: 2005Q4

REPORT INFORMATION
  Report Type: 
  Country: None (occurrence: None)
  Receive Date: 20051227
  Receipt Date: 20051216
  Transmission Date: 20060501
  Serious: Yes (Other)
  Sender: FDA-Public Use
  Company Number: 2005168823

PATIENT
  Age: 25 Year
  Sex: Female

DRUGS (1)
  1. DRAMAMINE [Suspect]
     Indication: EUPHORIC MOOD
     Dosage: EIGHT TABLETS ONCE, ORAL
     Route: 048
     Dates: start: 20051216, end: 20051216

REACTIONS (1)
  - HALLUCINATION [None]
